FAERS Safety Report 14354394 (Version 6)
Quarter: 2019Q4

REPORT INFORMATION
  Report Type: Report from Study
  Country: JP (occurrence: JP)
  Receive Date: 20180105
  Receipt Date: 20191125
  Transmission Date: 20200122
  Serious: Yes (Hospitalization, Other)
  Sender: FDA-Public Use
  Company Number: JP-ASTELLAS-2009JP000585

PATIENT
  Age: 21 Year
  Sex: Female
  Weight: 54 kg

DRUGS (134)
  1. PREDNISOLONE. [Suspect]
     Active Substance: PREDNISOLONE
     Route: 048
     Dates: start: 20120816, end: 20120913
  2. DECADRON [Suspect]
     Active Substance: DEXAMETHASONE
     Indication: LUPUS NEPHRITIS
     Route: 048
     Dates: start: 20150430, end: 20150610
  3. MUCOSTA [Concomitant]
     Active Substance: REBAMIPIDE
     Indication: UPPER RESPIRATORY TRACT INFLAMMATION
     Route: 048
     Dates: start: 20071119, end: 20080107
  4. MUCOSTA [Concomitant]
     Active Substance: REBAMIPIDE
     Indication: NASOPHARYNGITIS
     Route: 048
     Dates: start: 20080811, end: 20081027
  5. LOXONIN [Concomitant]
     Active Substance: LOXOPROFEN SODIUM
     Indication: PHARYNGITIS
     Route: 048
     Dates: start: 20120529, end: 20120602
  6. LOXONIN [Concomitant]
     Active Substance: LOXOPROFEN SODIUM
     Indication: PYREXIA
     Dosage: 60 MG, AT PYREXIA
     Route: 048
     Dates: start: 20140204, end: 20140209
  7. LOXONIN [Concomitant]
     Active Substance: LOXOPROFEN SODIUM
     Indication: UPPER RESPIRATORY TRACT INFLAMMATION
     Dosage: 60 MG, AT PYREXIA
     Route: 048
     Dates: start: 20140220, end: 20140224
  8. FLOMOX [Concomitant]
     Route: 048
     Dates: start: 20120529, end: 20120602
  9. ROCEPHIN [Concomitant]
     Active Substance: CEFTRIAXONE SODIUM
     Indication: BACTERIAL INFECTION
     Route: 065
     Dates: start: 20090601, end: 20090601
  10. OMEPRAL                            /00661201/ [Concomitant]
     Active Substance: OMEPRAZOLE
     Indication: PROPHYLAXIS AGAINST GASTROINTESTINAL ULCER
     Route: 048
     Dates: start: 20120824, end: 20130927
  11. PL [Concomitant]
     Active Substance: ACETAMINOPHEN\CAFFEINE\PROMETHAZINE\SALICYLAMIDE
     Indication: NASOPHARYNGITIS
     Route: 048
     Dates: start: 20130110, end: 20130113
  12. CRAVIT [Concomitant]
     Active Substance: LEVOFLOXACIN
     Indication: PLEURISY
     Route: 048
     Dates: start: 20140310, end: 20140313
  13. CRAVIT [Concomitant]
     Active Substance: LEVOFLOXACIN
     Indication: LYMPHADENITIS
     Route: 048
     Dates: start: 20150129, end: 20150202
  14. KLARICID                           /00984601/ [Concomitant]
     Active Substance: CLARITHROMYCIN
     Indication: PYREXIA
     Route: 048
     Dates: start: 20140313, end: 20140319
  15. FERROMIA [Concomitant]
     Active Substance: SODIUM FERROUS CITRATE
     Indication: ANAEMIA
     Route: 048
     Dates: start: 20150108, end: 20150430
  16. TRANSAMIN [Concomitant]
     Active Substance: TRANEXAMIC ACID
     Indication: METRORRHAGIA
     Dosage: UNK UNK, UNKNOWN FREQ.
     Route: 065
  17. OLOPATADINE HYDROCHLORIDE. [Concomitant]
     Active Substance: OLOPATADINE HYDROCHLORIDE
     Indication: RASH
     Route: 048
     Dates: start: 20160111, end: 20160113
  18. MYSERA [Concomitant]
     Active Substance: MOMETASONE FUROATE
     Indication: ERYTHEMA
     Dosage: UNK UNK, UNKNOWN FREQ.
     Route: 050
     Dates: start: 20160426, end: 20160526
  19. PREDNISOLONE. [Suspect]
     Active Substance: PREDNISOLONE
     Route: 048
     Dates: start: 20071119, end: 20071210
  20. PREDNISOLONE. [Suspect]
     Active Substance: PREDNISOLONE
     Route: 048
     Dates: start: 20141211, end: 20150412
  21. DECADRON [Suspect]
     Active Substance: DEXAMETHASONE
     Route: 048
     Dates: start: 20150730, end: 20150826
  22. DECADRON [Suspect]
     Active Substance: DEXAMETHASONE
     Dosage: 0.5 MG/DAY, UNKNOWN FREQ.
     Route: 048
     Dates: start: 20170714
  23. MUCOSTA [Concomitant]
     Active Substance: REBAMIPIDE
     Indication: PYREXIA
     Route: 048
     Dates: start: 20091130, end: 20091228
  24. MUCOSTA [Concomitant]
     Active Substance: REBAMIPIDE
     Indication: PLEURISY
     Dosage: 100 MG, AT PYREXIA
     Route: 048
     Dates: start: 20140204, end: 20140209
  25. LOXONIN [Concomitant]
     Active Substance: LOXOPROFEN SODIUM
     Route: 048
     Dates: start: 20160112, end: 20160117
  26. TAMIFLU [Concomitant]
     Active Substance: OSELTAMIVIR PHOSPHATE
     Indication: INFLUENZA
     Route: 048
     Dates: start: 20130214, end: 20130218
  27. CRAVIT [Concomitant]
     Active Substance: LEVOFLOXACIN
     Route: 048
     Dates: start: 20160225, end: 20160305
  28. MIYA-BM [Concomitant]
     Active Substance: CLOSTRIDIUM BUTYRICUM SPORES STRAIN M-55
     Indication: DIARRHOEA
     Route: 048
     Dates: start: 20151229, end: 20160118
  29. FUNGIZONE [Concomitant]
     Active Substance: AMPHOTERICIN B
     Dosage: 3 ML/DAY, UNKNOWN FREQ.
     Route: 048
     Dates: start: 20161027, end: 20161110
  30. TRANSAMIN [Concomitant]
     Active Substance: TRANEXAMIC ACID
     Indication: PHARYNGITIS
     Dosage: UNK UNK, UNKNOWN FREQ.
     Route: 065
  31. TALION                             /01587402/ [Concomitant]
     Active Substance: BEPOTASTINE BESYLATE
     Indication: RASH
     Route: 048
     Dates: start: 20160118, end: 20160124
  32. TACROLIMUS. [Suspect]
     Active Substance: TACROLIMUS
     Indication: LUPUS NEPHRITIS
     Route: 048
     Dates: start: 20070910
  33. PREDNISOLONE. [Suspect]
     Active Substance: PREDNISOLONE
     Route: 048
     Dates: start: 20091229, end: 20110526
  34. PREDNISOLONE. [Suspect]
     Active Substance: PREDNISOLONE
     Route: 048
     Dates: start: 20120914, end: 20120927
  35. PREDNISOLONE. [Suspect]
     Active Substance: PREDNISOLONE
     Route: 048
     Dates: start: 20141120, end: 20141210
  36. DECADRON [Suspect]
     Active Substance: DEXAMETHASONE
     Route: 048
     Dates: start: 20150702, end: 20150729
  37. DECADRON [Suspect]
     Active Substance: DEXAMETHASONE
     Route: 048
     Dates: start: 20160526, end: 20160629
  38. MUCOSTA [Concomitant]
     Active Substance: REBAMIPIDE
     Indication: NAUSEA
     Route: 048
     Dates: start: 20130214, end: 20130220
  39. MUCOSTA [Concomitant]
     Active Substance: REBAMIPIDE
     Dosage: 100 MG, AT PYREXIA
     Route: 048
     Dates: start: 20140529, end: 20140601
  40. MUCOSTA [Concomitant]
     Active Substance: REBAMIPIDE
     Route: 048
     Dates: start: 20150730, end: 20150802
  41. MUCOSTA [Concomitant]
     Active Substance: REBAMIPIDE
     Route: 048
     Dates: start: 20160104, end: 20160123
  42. TAKEPRON [Concomitant]
     Active Substance: LANSOPRAZOLE
     Route: 048
     Dates: start: 20141030
  43. FLOMOX [Concomitant]
     Indication: BACTERIAL INFECTION
     Route: 048
     Dates: start: 20090601, end: 20090606
  44. FLOMOX [Concomitant]
     Indication: PHARYNGITIS
     Route: 048
     Dates: start: 20120315, end: 20120318
  45. DOGMATYL [Concomitant]
     Active Substance: SULPIRIDE
     Indication: GASTRITIS
     Route: 048
     Dates: start: 20091130, end: 20091228
  46. ANTEBATE [Concomitant]
     Active Substance: BETAMETHASONE DIPROPIONATE
     Indication: RASH
     Dosage: UNK UNK, UNKNOWN FREQ.
     Route: 050
     Dates: start: 20160114, end: 20160218
  47. MIYA-BM [Concomitant]
     Active Substance: CLOSTRIDIUM BUTYRICUM SPORES STRAIN M-55
     Indication: FAECES SOFT
     Route: 048
     Dates: start: 20140710, end: 20140723
  48. PREDONINE [Concomitant]
     Active Substance: PREDNISOLONE
     Route: 048
     Dates: start: 20150413, end: 20150429
  49. LEVOFLOXACIN. [Concomitant]
     Active Substance: LEVOFLOXACIN
     Indication: LYMPHADENOPATHY
     Route: 048
     Dates: start: 20160310, end: 20160316
  50. DEQUALINIUM [Concomitant]
     Active Substance: DEQUALINIUM
     Indication: PHARYNGITIS
     Dosage: 0.25 MG, ONCE DAILY
     Route: 048
     Dates: start: 20160616, end: 20160629
  51. PREDNISOLONE. [Suspect]
     Active Substance: PREDNISOLONE
     Indication: LUPUS NEPHRITIS
     Route: 048
  52. PREDNISOLONE. [Suspect]
     Active Substance: PREDNISOLONE
     Route: 048
     Dates: start: 20071210, end: 20080922
  53. PREDNISOLONE. [Suspect]
     Active Substance: PREDNISOLONE
     Route: 048
     Dates: start: 20080922, end: 20081201
  54. PREDNISOLONE. [Suspect]
     Active Substance: PREDNISOLONE
     Route: 048
     Dates: start: 20131003, end: 20141014
  55. PLAQUENIL                          /00072602/ [Suspect]
     Active Substance: HYDROXYCHLOROQUINE DIPHOSPHATE
     Indication: SYSTEMIC LUPUS ERYTHEMATOSUS
     Dosage: UNK UNK, UNKNOWN FREQ.
     Route: 065
  56. DECADRON [Suspect]
     Active Substance: DEXAMETHASONE
     Route: 048
     Dates: start: 20160512, end: 20160525
  57. DECADRON [Suspect]
     Active Substance: DEXAMETHASONE
     Dosage: 1 MG/DAY, UNKNOWN FREQ.
     Route: 048
     Dates: start: 20170120, end: 20170522
  58. CALCIUM LACTATE [Concomitant]
     Active Substance: CALCIUM LACTATE
     Indication: PROPHYLAXIS
     Route: 048
  59. ONEALFA [Concomitant]
     Active Substance: ALFACALCIDOL
     Indication: PROPHYLAXIS
     Dosage: 0.5 ?G, ONCE DAILY
     Route: 048
  60. MUCOSTA [Concomitant]
     Active Substance: REBAMIPIDE
     Indication: PHARYNGITIS
     Route: 048
     Dates: start: 20090323, end: 20090429
  61. MUCOSTA [Concomitant]
     Active Substance: REBAMIPIDE
     Indication: PROPHYLAXIS
     Route: 048
     Dates: start: 20130110, end: 20130113
  62. MUCOSTA [Concomitant]
     Active Substance: REBAMIPIDE
     Route: 048
     Dates: start: 20151029, end: 20151111
  63. INAVIR                             /00587301/ [Concomitant]
     Indication: INFLUENZA
     Route: 055
     Dates: start: 20130206, end: 20130206
  64. CRAVIT [Concomitant]
     Active Substance: LEVOFLOXACIN
     Route: 048
     Dates: start: 20150604, end: 20150610
  65. FAROM [Concomitant]
     Active Substance: FAROPENEM SODIUM
     Route: 048
     Dates: start: 20160616, end: 20160619
  66. CELECOX [Concomitant]
     Active Substance: CELECOXIB
     Indication: ARTHRALGIA
     Route: 048
     Dates: start: 20150312, end: 20160217
  67. LOCOID [Concomitant]
     Active Substance: HYDROCORTISONE BUTYRATE
     Indication: RASH
     Dosage: UNK UNK, UNKNOWN FREQ.
     Route: 050
     Dates: start: 20160114, end: 20160218
  68. REBAMIDE [Concomitant]
     Indication: LYMPHADENITIS
     Route: 048
     Dates: start: 20160226, end: 20160301
  69. PROTOPIC [Concomitant]
     Active Substance: TACROLIMUS
     Indication: ERYTHEMA
     Dosage: UNK UNK, UNKNOWN FREQ.
     Route: 050
     Dates: start: 20160426, end: 20160526
  70. PREDNISOLONE. [Suspect]
     Active Substance: PREDNISOLONE
     Route: 048
     Dates: start: 20070910, end: 20071119
  71. DECADRON [Suspect]
     Active Substance: DEXAMETHASONE
     Route: 048
     Dates: start: 20160324, end: 20160413
  72. DECADRON [Suspect]
     Active Substance: DEXAMETHASONE
     Route: 048
     Dates: start: 20160915, end: 20161124
  73. MUCOSTA [Concomitant]
     Active Substance: REBAMIPIDE
     Indication: INFLUENZA
     Route: 048
     Dates: start: 20090501, end: 20090505
  74. LOXONIN [Concomitant]
     Active Substance: LOXOPROFEN SODIUM
     Indication: PLEURISY
     Dosage: 60 MG, AT PYREXIA
     Route: 048
     Dates: start: 20140313, end: 20140319
  75. LOXONIN [Concomitant]
     Active Substance: LOXOPROFEN SODIUM
     Route: 048
     Dates: start: 20150730, end: 20150802
  76. LOXONIN [Concomitant]
     Active Substance: LOXOPROFEN SODIUM
     Route: 048
     Dates: start: 20160104, end: 20160107
  77. MUCODYNE [Concomitant]
     Active Substance: CARBOCYSTEINE
     Indication: PHARYNGITIS
     Dosage: UNK UNK, UNKNOWN FREQ.
     Route: 065
  78. FAROM [Concomitant]
     Active Substance: FAROPENEM SODIUM
     Indication: PYREXIA
     Route: 048
     Dates: start: 20140313, end: 20140319
  79. FAROM [Concomitant]
     Active Substance: FAROPENEM SODIUM
     Indication: PHARYNGITIS
     Route: 048
     Dates: start: 20160317, end: 20160323
  80. GENTACIN [Concomitant]
     Active Substance: GENTAMICIN SULFATE
     Indication: RASH
     Dosage: UNK UNK, UNKNOWN FREQ.
     Route: 050
     Dates: start: 20160204, end: 20160218
  81. PREDNISOLONE. [Suspect]
     Active Substance: PREDNISOLONE
     Route: 048
     Dates: start: 20081201, end: 20091228
  82. PREDNISOLONE. [Suspect]
     Active Substance: PREDNISOLONE
     Route: 048
     Dates: start: 20120928, end: 20121025
  83. DECADRON [Suspect]
     Active Substance: DEXAMETHASONE
     Route: 048
     Dates: start: 20150827, end: 20160323
  84. DECADRON [Suspect]
     Active Substance: DEXAMETHASONE
     Dosage: 2.0 MG, ONCE DAILY
     Route: 048
     Dates: start: 20160414, end: 20160511
  85. DECADRON [Suspect]
     Active Substance: DEXAMETHASONE
     Route: 048
     Dates: start: 20160714, end: 20160914
  86. DECADRON [Suspect]
     Active Substance: DEXAMETHASONE
     Dosage: 1.25 MG/DAY, UNKNOWN FREQ.
     Route: 048
     Dates: start: 20161125, end: 20170119
  87. DECADRON [Suspect]
     Active Substance: DEXAMETHASONE
     Dosage: 0.75 MG/DAY, UNKNOWN FREQ.
     Route: 048
     Dates: start: 20170523, end: 20170713
  88. GASTER [Concomitant]
     Active Substance: FAMOTIDINE
     Indication: PROPHYLAXIS
     Route: 048
  89. MUCODYNE [Concomitant]
     Active Substance: CARBOCYSTEINE
     Indication: BRONCHITIS
     Route: 048
     Dates: start: 20110303, end: 20110309
  90. CRAVIT [Concomitant]
     Active Substance: LEVOFLOXACIN
     Indication: PYREXIA
     Route: 048
     Dates: start: 20140204, end: 20140209
  91. FAROM [Concomitant]
     Active Substance: FAROPENEM SODIUM
     Indication: NECK PAIN
     Route: 048
     Dates: start: 20140731, end: 20140806
  92. FAROM [Concomitant]
     Active Substance: FAROPENEM SODIUM
     Indication: LYMPHADENOPATHY
     Route: 048
     Dates: start: 20160125, end: 20160201
  93. MIYA-BM [Concomitant]
     Active Substance: CLOSTRIDIUM BUTYRICUM SPORES STRAIN M-55
     Route: 048
     Dates: start: 20160616, end: 20160629
  94. PREDONINE [Concomitant]
     Active Substance: PREDNISOLONE
     Route: 048
     Dates: start: 20141120, end: 20150412
  95. FUNGIZONE [Concomitant]
     Active Substance: AMPHOTERICIN B
     Dosage: UNK UNK, UNKNOWN FREQ.
     Route: 065
  96. CELECOX [Concomitant]
     Active Substance: CELECOXIB
     Indication: MYALGIA
  97. ADONA                              /00056903/ [Concomitant]
     Active Substance: CARBAZOCHROME SODIUM SULFONATE
     Indication: METRORRHAGIA
     Dosage: UNK UNK, UNKNOWN FREQ.
     Route: 065
  98. NAUZELIN [Concomitant]
     Active Substance: DOMPERIDONE
     Indication: NAUSEA
     Route: 048
     Dates: start: 20151029, end: 20151104
  99. LOXOPROFEN [Concomitant]
     Active Substance: LOXOPROFEN
     Indication: LYMPHADENITIS
     Route: 048
     Dates: start: 20160223, end: 20160229
  100. PREDNISOLONE. [Suspect]
     Active Substance: PREDNISOLONE
     Route: 048
     Dates: start: 20121026, end: 20121122
  101. PREDNISOLONE. [Suspect]
     Active Substance: PREDNISOLONE
     Route: 048
     Dates: start: 20130125, end: 20131002
  102. PLAQUENIL                          /00072602/ [Suspect]
     Active Substance: HYDROXYCHLOROQUINE DIPHOSPHATE
     Indication: LUPUS NEPHRITIS
     Route: 048
     Dates: start: 20160602
  103. DECADRON [Suspect]
     Active Substance: DEXAMETHASONE
     Indication: LYMPHADENOPATHY
     Route: 048
     Dates: start: 20150611, end: 20150701
  104. DECADRON [Suspect]
     Active Substance: DEXAMETHASONE
     Dosage: 2.0 MG, ONCE DAILY
     Route: 048
     Dates: start: 20160630, end: 20160713
  105. GASTER [Concomitant]
     Active Substance: FAMOTIDINE
     Route: 048
     Dates: start: 20080811, end: 20081027
  106. GASTER [Concomitant]
     Active Substance: FAMOTIDINE
     Route: 048
     Dates: start: 20091005, end: 20091103
  107. MUCOSTA [Concomitant]
     Active Substance: REBAMIPIDE
     Indication: GASTRITIS
     Route: 048
     Dates: start: 20120529, end: 20120602
  108. MUCOSTA [Concomitant]
     Active Substance: REBAMIPIDE
     Dosage: 100 MG, AT PYREXIA
     Route: 048
     Dates: start: 20140313, end: 20140319
  109. TAKEPRON [Concomitant]
     Active Substance: LANSOPRAZOLE
     Indication: GASTRITIS
     Route: 048
     Dates: start: 20090323, end: 20090420
  110. TAKEPRON [Concomitant]
     Active Substance: LANSOPRAZOLE
     Indication: PROPHYLAXIS
     Route: 048
     Dates: start: 20091130, end: 20100125
  111. LOXONIN [Concomitant]
     Active Substance: LOXOPROFEN SODIUM
     Dosage: 60 MG, AT PYREXIA
     Route: 048
     Dates: start: 20140529, end: 20140601
  112. FLOMOX [Concomitant]
     Indication: SKIN MASS
     Route: 048
     Dates: start: 20111117, end: 20111120
  113. EBASTEL [Concomitant]
     Active Substance: EBASTINE
     Indication: URTICARIA
     Route: 048
     Dates: start: 20110321, end: 20110324
  114. CRAVIT [Concomitant]
     Active Substance: LEVOFLOXACIN
     Indication: PHARYNGITIS
     Route: 048
     Dates: start: 20140220, end: 20140224
  115. FAROM [Concomitant]
     Active Substance: FAROPENEM SODIUM
     Indication: UPPER RESPIRATORY TRACT INFLAMMATION
     Route: 048
     Dates: start: 20140529, end: 20140601
  116. FUNGIZONE [Concomitant]
     Active Substance: AMPHOTERICIN B
     Dosage: 3 ML/DAY, UNKNOWN FREQ.
     Route: 048
     Dates: start: 20170907, end: 20170922
  117. PREDNISOLONE. [Suspect]
     Active Substance: PREDNISOLONE
     Route: 048
     Dates: start: 20110527, end: 20120815
  118. PREDNISOLONE. [Suspect]
     Active Substance: PREDNISOLONE
     Route: 048
     Dates: start: 20121123, end: 20130124
  119. AUGMENTIN [Suspect]
     Active Substance: AMOXICILLIN\CLAVULANATE POTASSIUM
     Indication: PLEURISY
     Route: 048
     Dates: start: 20151229, end: 20160103
  120. MUCOSTA [Concomitant]
     Active Substance: REBAMIPIDE
     Dosage: 100 MG, AT PYREXIA
     Route: 048
     Dates: start: 20140220, end: 20140224
  121. PRIMPERAN [Concomitant]
     Active Substance: METOCLOPRAMIDE HYDROCHLORIDE
     Indication: NAUSEA
     Route: 048
     Dates: start: 20081122, end: 20081125
  122. LAC-B [Concomitant]
     Active Substance: BIFIDOBACTERIUM SPP.
     Indication: NAUSEA
     Route: 048
     Dates: start: 20081122, end: 20081125
  123. LOXONIN [Concomitant]
     Active Substance: LOXOPROFEN SODIUM
     Indication: NASOPHARYNGITIS
     Route: 048
     Dates: start: 20090501, end: 20090505
  124. LOXONIN [Concomitant]
     Active Substance: LOXOPROFEN SODIUM
     Route: 048
     Dates: start: 20150129, end: 20150205
  125. ANTEBATE [Concomitant]
     Active Substance: BETAMETHASONE DIPROPIONATE
     Indication: URTICARIA
     Dosage: UNKNOWN DOSE, 2-3 TIMES DAILY
     Route: 061
     Dates: start: 20110321, end: 20110324
  126. CALONAL [Concomitant]
     Active Substance: ACETAMINOPHEN
     Indication: INFLUENZA
     Route: 048
     Dates: start: 20130214, end: 20130218
  127. CRAVIT [Concomitant]
     Active Substance: LEVOFLOXACIN
     Route: 048
     Dates: start: 20150730, end: 20150805
  128. CRAVIT [Concomitant]
     Active Substance: LEVOFLOXACIN
     Route: 048
     Dates: start: 20160104, end: 20160110
  129. FAROM [Concomitant]
     Active Substance: FAROPENEM SODIUM
     Indication: ARTHRALGIA
     Route: 048
     Dates: start: 20140828, end: 20140903
  130. FAROM [Concomitant]
     Active Substance: FAROPENEM SODIUM
     Dosage: 600 MG/DAY, UNKNOWN FREQ.
     Route: 048
     Dates: start: 20161013, end: 20161019
  131. PREDONINE [Concomitant]
     Active Substance: PREDNISOLONE
     Indication: LUPUS NEPHRITIS
     Route: 048
     Dates: start: 20141015, end: 20141119
  132. FUNGIZONE [Concomitant]
     Active Substance: AMPHOTERICIN B
     Indication: ORAL CANDIDIASIS
     Route: 048
     Dates: start: 20141203, end: 20150122
  133. RESTAMIN A KOWA [Concomitant]
     Indication: RASH
     Dosage: UNK UNK, UNKNOWN FREQ.
     Route: 050
     Dates: start: 20160112, end: 20160218
  134. CEFTRIAXONE SODIUM. [Concomitant]
     Active Substance: CEFTRIAXONE SODIUM
     Indication: LYMPHADENITIS
     Route: 042
     Dates: start: 20160225, end: 20160228

REACTIONS (34)
  - Oral candidiasis [Recovered/Resolved]
  - Faeces soft [Recovering/Resolving]
  - Diarrhoea [Recovering/Resolving]
  - Myalgia [Recovered/Resolved]
  - Diarrhoea [Recovered/Resolved]
  - Influenza [Recovering/Resolving]
  - Upper respiratory tract inflammation [Recovering/Resolving]
  - Rash [Recovering/Resolving]
  - Oral candidiasis [Recovered/Resolved]
  - Neck pain [Recovering/Resolving]
  - Hyperuricaemia [Recovered/Resolved]
  - Pharyngitis [Recovered/Resolved]
  - Lymphadenopathy [Recovering/Resolving]
  - Nausea [Recovering/Resolving]
  - Pyrexia [Recovered/Resolved]
  - Bacterial infection [Recovering/Resolving]
  - Nasopharyngitis [Recovering/Resolving]
  - Bronchitis [Recovering/Resolving]
  - Pyrexia [Recovered/Resolved]
  - Erythema [Recovered/Resolved]
  - Oral candidiasis [Recovered/Resolved]
  - Lymphadenopathy [Recovered/Resolved]
  - Gastritis [Recovering/Resolving]
  - Pharyngitis [Recovering/Resolving]
  - Nausea [Recovered/Resolved]
  - Skin mass [Recovering/Resolving]
  - Anaemia [Recovered/Resolved]
  - Lymphadenitis [Recovering/Resolving]
  - Pleurisy [Recovering/Resolving]
  - Systemic lupus erythematosus [Recovering/Resolving]
  - Metrorrhagia [Recovered/Resolved]
  - Melanocytic naevus [Recovered/Resolved]
  - Urticaria [Recovering/Resolving]
  - Arthralgia [Recovered/Resolved]

NARRATIVE: CASE EVENT DATE: 20071112
